FAERS Safety Report 10238957 (Version 2)
Quarter: 2014Q2

REPORT INFORMATION
  Report Type: Spontaneous
  Country: US (occurrence: US)
  Receive Date: 20140616
  Receipt Date: 20140616
  Transmission Date: 20141212
  Serious: Yes (Hospitalization, Other)
  Sender: FDA-Public Use
  Company Number: US-009507513-2010SP038554

PATIENT
  Sex: Female
  Weight: 61.24 kg

DRUGS (2)
  1. NUVARING [Suspect]
     Indication: CONTRACEPTION
     Dates: start: 200704, end: 200809
  2. CHANTIX [Suspect]
     Indication: EX-TOBACCO USER

REACTIONS (11)
  - Asthma [Unknown]
  - Pulmonary embolism [Unknown]
  - Hypertension [Unknown]
  - Herpes simplex [Unknown]
  - Skin infection [Unknown]
  - Anxiety [Unknown]
  - Depression [Unknown]
  - Device expulsion [Recovered/Resolved]
  - Bacterial vaginosis [Unknown]
  - Headache [Unknown]
  - Nausea [Unknown]
